FAERS Safety Report 7301360-4 (Version None)
Quarter: 2011Q1

REPORT INFORMATION
  Report Type: 
  Country: None (occurrence: None)
  Receive Date: 20110113
  Receipt Date: 20100916
  Transmission Date: 20110831
  Serious: No
  Sender: FDA-Public Use
  Company Number: US-001272

PATIENT
  Sex: Female
  Weight: 61.6 kg

DRUGS (3)
  1. KUVAN [Suspect]
     Indication: PHENYLKETONURIA
     Dosage: (20 MG/KG QD ORAL) (20 MG/KG QD ORAL) (ORAL)
     Route: 048
     Dates: start: 20080209, end: 20080501
  2. KUVAN [Suspect]
     Indication: PHENYLKETONURIA
     Dosage: (20 MG/KG QD ORAL) (20 MG/KG QD ORAL) (ORAL)
     Route: 048
     Dates: end: 20090109
  3. KUVAN [Suspect]
     Indication: PHENYLKETONURIA
     Dosage: (20 MG/KG QD ORAL) (20 MG/KG QD ORAL) (ORAL)
     Route: 048
     Dates: start: 20090110

REACTIONS (1)
  - NAUSEA [None]
